FAERS Safety Report 16100837 (Version 2)
Quarter: 2019Q4

REPORT INFORMATION
  Report Type: Report from Study
  Country: MY (occurrence: MY)
  Receive Date: 20190321
  Receipt Date: 20191007
  Transmission Date: 20200122
  Serious: Yes (Hospitalization, Other)
  Sender: FDA-Public Use
  Company Number: MY-SEATTLE GENETICS-2018SGN01088

PATIENT
  Sex: Female

DRUGS (1)
  1. BRENTUXIMAB VEDOTIN-MPI [Suspect]
     Active Substance: BRENTUXIMAB VEDOTIN
     Indication: HODGKIN^S DISEASE REFRACTORY
     Dosage: 50 MG, UNK
     Route: 042
     Dates: start: 20180104

REACTIONS (3)
  - Hodgkin^s disease refractory [Unknown]
  - Pneumonia [Unknown]
  - Pulmonary oedema [Unknown]
